FAERS Safety Report 6792555-7 (Version None)
Quarter: 2010Q2

REPORT INFORMATION
  Report Type: 
  Country: None (occurrence: None)
  Receive Date: 20100624
  Receipt Date: 20080805
  Transmission Date: 20101027
  Serious: Yes (Other)
  Sender: FDA-Public Use
  Company Number: US-PFIZER INC-2008071249

PATIENT
  Age: 35 Year
  Sex: Female

DRUGS (2)
  1. GEODON [Suspect]
  2. PROZAC [Concomitant]

REACTIONS (1)
  - MANIA [None]
